FAERS Safety Report 16906326 (Version 1)
Quarter: 2019Q4

REPORT INFORMATION
  Report Type: Spontaneous
  Country: US (occurrence: US)
  Receive Date: 20191011
  Receipt Date: 20191011
  Transmission Date: 20200122
  Serious: No
  Sender: FDA-Public Use
  Company Number: US-LUPIN PHARMACEUTICALS INC.-2018-07540

PATIENT
  Sex: Male

DRUGS (1)
  1. CEPHALEXIN CAPSULES USP, 500 MG [Suspect]
     Active Substance: CEPHALEXIN
     Indication: PRODUCT USED FOR UNKNOWN INDICATION
     Dosage: 500 MG, (TAKEN ONLY ONE CAPSULE)
     Route: 065

REACTIONS (2)
  - Contraindicated product administered [Unknown]
  - No adverse event [Unknown]
